FAERS Safety Report 9154397 (Version 1)
Quarter: 2013Q1

REPORT INFORMATION
  Report Type: Spontaneous
  Country: FR (occurrence: None)
  Receive Date: 20130205
  Receipt Date: 20130205
  Transmission Date: 20140127
  Serious: Yes (Other)
  Sender: FDA-Public Use
  Company Number: 2013-000309

PATIENT
  Age: 59 Year
  Sex: 0

DRUGS (5)
  1. ACTONEL [Suspect]
     Route: 048
     Dates: end: 201111
  2. ORBENINE [Suspect]
     Route: 048
     Dates: start: 20110912, end: 20110920
  3. DAFALGAN [Suspect]
     Route: 048
     Dates: end: 201111
  4. LIPANTHYL [Suspect]
     Route: 048
     Dates: end: 201111
  5. CALCIUM\CHOLECALCIFEROL [Suspect]
     Dates: end: 201111

REACTIONS (1)
  - Chronic hepatitis [None]
